FAERS Safety Report 13321392 (Version 2)
Quarter: 2018Q1

REPORT INFORMATION
  Report Type: Spontaneous
  Country: US (occurrence: US)
  Receive Date: 20170309
  Receipt Date: 20180213
  Transmission Date: 20180508
  Serious: Yes (Congenital Anomaly, Other)
  Sender: FDA-Public Use
  Company Number: PHEH2017US006615

PATIENT
  Sex: Male

DRUGS (3)
  1. ZOFRAN [Suspect]
     Active Substance: ONDANSETRON HYDROCHLORIDE
     Indication: FOETAL EXPOSURE DURING PREGNANCY
     Route: 064
  2. ONDANSETRON [Suspect]
     Active Substance: ONDANSETRON
     Indication: FOETAL EXPOSURE DURING PREGNANCY
     Dosage: MOTHER^S DOSE: 08 MG, UNK
     Route: 064
  3. ONDANSETRON [Suspect]
     Active Substance: ONDANSETRON
     Indication: FOETAL EXPOSURE DURING PREGNANCY
     Dosage: MOTHER^S DOSE: 08 MG, UNK
     Route: 064

REACTIONS (19)
  - Pulmonary valve stenosis [Unknown]
  - Cardiac ventricular disorder [Unknown]
  - Transposition of the great vessels [Unknown]
  - Heterotaxia [Unknown]
  - Anxiety [Unknown]
  - Dextrocardia [Unknown]
  - Post procedural complication [Unknown]
  - Anhedonia [Unknown]
  - Bundle branch block right [Unknown]
  - Heart disease congenital [Unknown]
  - Atrial septal defect [Unknown]
  - Ventricular septal defect [Unknown]
  - Hypoplastic right heart syndrome [Unknown]
  - Foetal exposure during pregnancy [Unknown]
  - Injury [Unknown]
  - Emotional distress [Unknown]
  - Deformity [Unknown]
  - Congenital anomaly [Unknown]
  - Pain [Unknown]
